FAERS Safety Report 7061517-7 (Version None)
Quarter: 2010Q4

REPORT INFORMATION
  Report Type: 
  Country: None (occurrence: None)
  Receive Date: 20101026
  Receipt Date: 20101014
  Transmission Date: 20110411
  Serious: Yes (Hospitalization, Other)
  Sender: FDA-Public Use
  Company Number: DE-PFIZER INC-2010112721

PATIENT
  Age: 55 Year
  Sex: Female

DRUGS (1)
  1. AROMASIN [Suspect]
     Indication: BREAST CANCER FEMALE
     Dosage: UNK
     Dates: start: 20100201, end: 20100901

REACTIONS (5)
  - BREAST CANCER [None]
  - DISEASE PROGRESSION [None]
  - DYSPNOEA [None]
  - METASTASES TO LUNG [None]
  - RESPIRATORY DISORDER [None]
